FAERS Safety Report 8394890-8 (Version None)
Quarter: 2012Q1

REPORT INFORMATION
  Report Type: 
  Country: None (occurrence: None)
  Receive Date: 20120323
  Receipt Date: 20110510
  Transmission Date: 20120608
  Serious: Yes (Other)
  Sender: FDA-Public Use
  Company Number: 163-21880-11031768

PATIENT
  Age: 81 Year
  Sex: Female
  Weight: 67.1324 kg

DRUGS (11)
  1. REVLIMID [Suspect]
     Indication: MULTIPLE MYELOMA
     Dosage: 25 MG, 1 IN 1 D, PO 10 MG, 25 MG, 1 IN 1 D, PO 3 WEEKS ON 1 WEEK OFF, PO
     Route: 048
     Dates: start: 20110301
  2. REVLIMID [Suspect]
     Indication: MULTIPLE MYELOMA
     Dosage: 25 MG, 1 IN 1 D, PO 10 MG, 25 MG, 1 IN 1 D, PO 3 WEEKS ON 1 WEEK OFF, PO
     Route: 048
     Dates: start: 20110106, end: 20110301
  3. REVLIMID [Suspect]
     Indication: MULTIPLE MYELOMA
     Dosage: 25 MG, 1 IN 1 D, PO 10 MG, 25 MG, 1 IN 1 D, PO 3 WEEKS ON 1 WEEK OFF, PO
     Route: 048
     Dates: start: 20101201
  4. CRESTOR (ROSUVASTATIN) (10 MILLIGRAM, TABLETS) [Concomitant]
  5. ALLOPURINOL [Concomitant]
  6. LISINOPRIL-HCTZ (ZESTORETIC) (TABLETS) [Concomitant]
  7. NASONEX [Concomitant]
  8. COLCHICINE (COLCHICINE) (TABLETS) [Concomitant]
  9. CENTRUM SILVER (CENTRUM SILVER) (CHEWABLE TABLET) [Concomitant]
  10. LUTEIN (XANTOFYL) (CAPSULES) [Concomitant]
  11. DEXAMETHASONE [Concomitant]

REACTIONS (2)
  - FATIGUE [None]
  - PANCYTOPENIA [None]
